FAERS Safety Report 7526784-1 (Version None)
Quarter: 2011Q2

REPORT INFORMATION
  Report Type: 
  Country: None (occurrence: None)
  Receive Date: 20110606
  Receipt Date: 20110530
  Transmission Date: 20111010
  Serious: Yes (Death, Hospitalization, Other)
  Sender: FDA-Public Use
  Company Number: US-TEVA-283970USA

PATIENT
  Sex: Female

DRUGS (3)
  1. ERLOTINIB HYDROCHLORIDE [Suspect]
     Indication: OVARIAN CANCER
     Dosage: 50 MILLIGRAM;
     Route: 048
  2. DOCETAXEL [Suspect]
     Indication: OVARIAN CANCER
     Route: 042
  3. CARBOPLATIN [Suspect]
     Indication: OVARIAN CANCER
     Dosage: ACU 6
     Route: 042

REACTIONS (2)
  - GASTROINTESTINAL TOXICITY [None]
  - CLOSTRIDIUM COLITIS [None]
